FAERS Safety Report 10388843 (Version 1)
Quarter: 2014Q1

REPORT INFORMATION
  Report Type: Spontaneous
  Country: US (occurrence: None)
  Receive Date: 20140306
  Receipt Date: 20140306
  Transmission Date: 20141002
  Serious: Yes (Disabling, Other)
  Sender: FDA-Public Use
  Company Number: 163-21880-13100166

PATIENT
  Age: 64 Year
  Sex: Male
  Weight: 74.39 kg

DRUGS (3)
  1. REVLIMID (LENALIDOMIDE) (25 MILLIGRAM, CAPSULES) [Suspect]
     Indication: PLASMA CELL MYELOMA
     Route: 048
     Dates: start: 201009
  2. DEXAMETHASONE [Concomitant]
  3. VELCADE (BORTEZOMIB) [Concomitant]

REACTIONS (3)
  - Muscle spasms [None]
  - Asthenia [None]
  - Abdominal pain [None]
